FAERS Safety Report 9791854 (Version 4)
Quarter: 2014Q1

REPORT INFORMATION
  Report Type: Spontaneous
  Country: US (occurrence: US)
  Receive Date: 20140102
  Receipt Date: 20140121
  Transmission Date: 20141002
  Serious: No
  Sender: FDA-Public Use
  Company Number: US-PFIZER INC-2013374552

PATIENT
  Age: 27 Year
  Sex: Female
  Weight: 56.69 kg

DRUGS (2)
  1. LYRICA [Suspect]
     Indication: FIBROMYALGIA
     Dosage: 75 MG, UNK
  2. LYRICA [Suspect]
     Dosage: 75 MG, 2X/DAY
     Dates: start: 201312

REACTIONS (2)
  - Drug effect incomplete [Unknown]
  - Malaise [Unknown]
